FAERS Safety Report 5659556-3 (Version None)
Quarter: 2008Q1

REPORT INFORMATION
  Report Type: 
  Country: None (occurrence: None)
  Receive Date: 20080311
  Receipt Date: 20080228
  Transmission Date: 20080703
  Serious: Yes (Death, Hospitalization)
  Sender: FDA-Public Use
  Company Number: JP-JNJFOC-20080300295

PATIENT
  Age: 63 Year
  Sex: Male
  Weight: 59 kg

DRUGS (13)
  1. REMICADE [Suspect]
     Route: 042
  2. REMICADE [Suspect]
     Route: 042
  3. REMICADE [Suspect]
     Route: 042
  4. REMICADE [Suspect]
     Indication: BEHCET'S SYNDROME
     Route: 042
  5. PLETAL [Concomitant]
     Route: 048
  6. AMLODIN [Concomitant]
     Indication: HYPERTENSION
     Route: 048
  7. PREDONINE [Concomitant]
     Indication: BEHCET'S SYNDROME
     Route: 048
  8. ATELEC [Concomitant]
     Indication: HYPERTENSION
     Route: 048
  9. NOVO RAPID MIX [Concomitant]
     Indication: DIABETES MELLITUS
  10. GLUCOBAY [Concomitant]
     Indication: DIABETES MELLITUS
     Route: 048
  11. OLMESARTAN MEDOXOMIL [Concomitant]
     Indication: HYPERTENSION
     Route: 048
  12. FINIBAX [Concomitant]
     Indication: LUNG INFECTION PSEUDOMONAL
  13. ANTITUBERCLUOSIS DRUGS [Concomitant]
     Indication: TUBERCULOSIS

REACTIONS (3)
  - LUNG INFECTION PSEUDOMONAL [None]
  - MULTI-ORGAN FAILURE [None]
  - TUBERCULOSIS [None]
